FAERS Safety Report 16057459 (Version 1)
Quarter: 2019Q1

REPORT INFORMATION
  Report Type: Spontaneous
  Country: US (occurrence: US)
  Receive Date: 20190311
  Receipt Date: 20190311
  Transmission Date: 20190418
  Serious: No
  Sender: FDA-Public Use
  Company Number: US-ASTRAZENECA-2019SE34028

PATIENT
  Age: 826 Month
  Sex: Female
  Weight: 56.7 kg

DRUGS (2)
  1. CENTRUM SILVER WOMEN^S 50+ [Suspect]
     Active Substance: MINERALS\VITAMINS
     Indication: DRUG THERAPY
     Dosage: TAKE ONE TABLET BY MOUTH, ONCE A DAY
     Route: 048
     Dates: end: 201807
  2. OMEPRAZOLE. [Suspect]
     Active Substance: OMEPRAZOLE
     Dosage: 20 MG
     Route: 048

REACTIONS (8)
  - Choking [Not Recovered/Not Resolved]
  - Dysphonia [Unknown]
  - Throat lesion [Unknown]
  - Gastrooesophageal reflux disease [Unknown]
  - Barrett^s oesophagus [Unknown]
  - Dry mouth [Unknown]
  - Drug ineffective [Unknown]
  - Glossodynia [Unknown]

NARRATIVE: CASE EVENT DATE: 201807
